FAERS Safety Report 21997947 (Version 1)
Quarter: 2023Q1

REPORT INFORMATION
  Report Type: Spontaneous
  Country: BE (occurrence: None)
  Receive Date: 20230216
  Receipt Date: 20230216
  Transmission Date: 20230417
  Serious: Yes (Other)
  Sender: FDA-Public Use
  Company Number: BE-ROCHE-3273038

PATIENT
  Sex: Female

DRUGS (1)
  1. OCREVUS [Suspect]
     Active Substance: OCRELIZUMAB
     Indication: Relapsing-remitting multiple sclerosis
     Dosage: SHE RECEIVED SUBSEQUENT DOSE ON 24/OCT/2019, 04/JUN/2020, 10/DEC/2020, 04/AUG/2021, 18/MAR/2022,
     Route: 042
     Dates: start: 20191010

REACTIONS (1)
  - Thrombocytopenia [Not Recovered/Not Resolved]
